FAERS Safety Report 17671066 (Version 1)
Quarter: 2020Q2

REPORT INFORMATION
  Report Type: Report from Study
  Country: US (occurrence: US)
  Receive Date: 20200415
  Receipt Date: 20200415
  Transmission Date: 20200713
  Serious: Yes (Hospitalization)
  Sender: FDA-Public Use
  Company Number: US-BAXTER-2020BAX008107

PATIENT
  Age: 69 Year
  Sex: Female

DRUGS (5)
  1. DOXIL [Suspect]
     Active Substance: DOXORUBICIN HYDROCHLORIDE
     Indication: BREAST CANCER
     Route: 042
     Dates: start: 20170116, end: 20170621
  2. DOXIL [Suspect]
     Active Substance: DOXORUBICIN HYDROCHLORIDE
     Indication: OVARIAN CANCER
     Route: 042
  3. DOXIL [Suspect]
     Active Substance: DOXORUBICIN HYDROCHLORIDE
     Indication: NEOPLASM MALIGNANT
     Dosage: LAST DOSE TIME: 14.00 TO 15.34
     Route: 042
     Dates: end: 20190305
  4. CARVEDIOL [Concomitant]
     Active Substance: CARVEDILOL
     Indication: CARDIAC DISORDER
     Route: 065
  5. CARVEDIOL [Concomitant]
     Active Substance: CARVEDILOL
     Indication: CARDIOMYOPATHY

REACTIONS (3)
  - Delirium [Unknown]
  - Pleural effusion [Recovering/Resolving]
  - Pulmonary oedema [Unknown]

NARRATIVE: CASE EVENT DATE: 20190324
